FAERS Safety Report 7910112-3 (Version None)
Quarter: 2011Q4

REPORT INFORMATION
  Report Type: 
  Country: None (occurrence: None)
  Receive Date: 20111111
  Receipt Date: 20111103
  Transmission Date: 20120403
  Serious: Yes (Death, Hospitalization)
  Sender: FDA-Public Use
  Company Number: BR-GENZYME-CLOF-1001868

PATIENT
  Sex: Female
  Weight: 72 kg

DRUGS (8)
  1. VALTREX [Concomitant]
     Indication: PROPHYLAXIS
     Dosage: 500 MG, QD
     Route: 065
     Dates: end: 20111017
  2. CLOLAR [Suspect]
     Indication: ACUTE LYMPHOCYTIC LEUKAEMIA RECURRENT
     Dosage: 94.6 MG, QDX5
     Route: 042
     Dates: start: 20111003, end: 20111007
  3. RIFAMPICIN [Concomitant]
     Indication: FEBRILE NEUTROPENIA
     Dosage: 600 MG, QD
     Route: 065
     Dates: start: 20111005, end: 20111017
  4. TEICOPLANIN [Concomitant]
     Indication: FEBRILE NEUTROPENIA
     Dosage: 400 MG, QD
     Route: 065
     Dates: start: 20110922, end: 20111017
  5. AMPHOTERICIN B [Concomitant]
     Indication: FEBRILE NEUTROPENIA
     Dosage: 50 MG, QD
     Route: 065
     Dates: start: 20110925, end: 20111015
  6. BACTRIM [Concomitant]
     Indication: PROPHYLAXIS
     Dosage: 3 AMPOULES QD
     Route: 065
     Dates: start: 20110929, end: 20111017
  7. MEROPENEM [Concomitant]
     Indication: FEBRILE NEUTROPENIA
     Dosage: 1 G, TID
     Route: 065
     Dates: start: 20110924, end: 20111017
  8. ALLOPURINOL [Concomitant]
     Indication: PROPHYLAXIS
     Dosage: 300 MG, QD
     Route: 065
     Dates: end: 20111017

REACTIONS (13)
  - CARDIAC ARREST [None]
  - HYPOKALAEMIA [None]
  - MYALGIA [None]
  - NAUSEA [None]
  - NERVOUS SYSTEM DISORDER [None]
  - MULTI-ORGAN FAILURE [None]
  - MYOSITIS [None]
  - CONFUSIONAL STATE [None]
  - HYPERAESTHESIA [None]
  - VOMITING [None]
  - MENTAL DISORDER [None]
  - HYPERNATRAEMIA [None]
  - EPISTAXIS [None]
